FAERS Safety Report 5536340-2 (Version None)
Quarter: 2007Q4

REPORT INFORMATION
  Report Type: 
  Country: None (occurrence: None)
  Receive Date: 20071206
  Receipt Date: 20071127
  Transmission Date: 20080405
  Serious: Yes (Hospitalization, Other)
  Sender: FDA-Public Use
  Company Number: TR-ABBOTT-07P-161-0425770-00

PATIENT
  Age: 4 Year
  Sex: Male

DRUGS (4)
  1. VALPROIC ACID [Suspect]
     Indication: EPILEPSY
     Route: 048
  2. LAMOTRIGINE [Interacting]
     Indication: EPILEPSY
     Route: 048
  3. LAMOTRIGINE [Interacting]
  4. PRIMIDONE [Concomitant]
     Indication: EPILEPSY
     Route: 048

REACTIONS (3)
  - DRUG INTERACTION [None]
  - DRUG LEVEL INCREASED [None]
  - HISTIOCYTOSIS HAEMATOPHAGIC [None]
